APPROVED DRUG PRODUCT: LOPERAMIDE HYDROCHLORIDE
Active Ingredient: LOPERAMIDE HYDROCHLORIDE
Strength: 2MG
Dosage Form/Route: CAPSULE;ORAL
Application: A072993 | Product #001
Applicant: CHARTWELL RX SCIENCES LLC
Approved: Aug 28, 1992 | RLD: No | RS: No | Type: DISCN